FAERS Safety Report 8942358 (Version 2)
Quarter: 2013Q1

REPORT INFORMATION
  Report Type: Spontaneous
  Country: US (occurrence: None)
  Receive Date: 20121121
  Receipt Date: 20121130
  Transmission Date: 20140127
  Serious: Yes (Life-Threatening, Hospitalization)
  Sender: FDA-Public Use
  Company Number: DKLU1086392

PATIENT
  Age: 4 Year
  Sex: Male

DRUGS (7)
  1. ONFI [Suspect]
     Indication: CONVULSION
     Route: 048
     Dates: start: 201208, end: 20121117
  2. DEPAKOTE (VALPROATE SEMISODIUM) [Concomitant]
  3. VIMPAT (LACOSAMIDE) [Concomitant]
  4. FELBATOL (FELBAMATE) [Concomitant]
  5. DIAZEPAM (DIAZEPAM) [Concomitant]
  6. ROBINUL (GLYCOPYRRONIUM BROMIDE) [Concomitant]
  7. SINGULAIR [Concomitant]

REACTIONS (3)
  - Hypothermia [None]
  - Hypersensitivity [None]
  - Shock [None]
